FAERS Safety Report 4889173-4 (Version None)
Quarter: 2005Q4

REPORT INFORMATION
  Report Type: 
  Country: None (occurrence: None)
  Receive Date: 20051215
  Receipt Date: 20041130
  Transmission Date: 20060501
  Serious: Yes (Other)
  Sender: FDA-Public Use
  Company Number: 2004106723

PATIENT
  Age: 69 Year
  Sex: Male
  Weight: 92.0802 kg

DRUGS (5)
  1. BEXTRA [Suspect]
     Indication: ARTHRITIS
     Dosage: 20 MG (20 MG, DAILY), ORAL
     Route: 048
     Dates: start: 20041101, end: 20041128
  2. MULTIVITAMIN ^LAPPE^ (VITAMINS NOS) [Concomitant]
  3. TOCOPHEROL (TOCOPHEROL) [Concomitant]
  4. ASCORBIC ACID [Concomitant]
  5. ASPIRIN [Concomitant]

REACTIONS (2)
  - CHEST DISCOMFORT [None]
  - HEART RATE IRREGULAR [None]
